FAERS Safety Report 21059587 (Version 2)
Quarter: 2022Q3

REPORT INFORMATION
  Report Type: Spontaneous
  Country: US (occurrence: US)
  Receive Date: 20220708
  Receipt Date: 20220719
  Transmission Date: 20221027
  Serious: No
  Sender: FDA-Public Use
  Company Number: US-PFIZER INC-202200932113

PATIENT
  Age: 68 Year
  Sex: Female
  Weight: 117.93 kg

DRUGS (3)
  1. QUINAPRIL [Suspect]
     Active Substance: QUINAPRIL
     Indication: Blood pressure abnormal
     Dosage: 40 MG, 1X/DAY, [40MG AND ONLY TOOK IT AT NIGHT]
     Route: 048
  2. QUINAPRIL [Suspect]
     Active Substance: QUINAPRIL
     Dosage: 20 MG, DAILY, [20MG, TAKE ONE TABLET BY MOUTH DAILY]
     Route: 048
  3. PAXLOVID [Concomitant]
     Active Substance: NIRMATRELVIR\RITONAVIR
     Indication: COVID-19
     Dosage: UNK
     Dates: start: 20220628, end: 20220702

REACTIONS (1)
  - Fatigue [Unknown]
